FAERS Safety Report 16995171 (Version 2)
Quarter: 2019Q4

REPORT INFORMATION
  Report Type: Spontaneous
  Country: CA (occurrence: CA)
  Receive Date: 20191105
  Receipt Date: 20191230
  Transmission Date: 20200122
  Serious: Yes (Other)
  Sender: FDA-Public Use
  Company Number: CA-CELLTRION INC.-2019CA022274

PATIENT

DRUGS (6)
  1. INFLECTRA [Suspect]
     Active Substance: INFLIXIMAB-DYYB
     Indication: RHEUMATOID ARTHRITIS
     Dosage: 200 MG, Q (EVERY) 0, 2, 6 WEEKS THEN EVERY 8 WEEKS
     Route: 042
     Dates: start: 20190611
  2. INFLECTRA [Suspect]
     Active Substance: INFLIXIMAB-DYYB
     Dosage: 200 MG, Q (EVERY) 0, 2, 6 WEEKS THEN EVERY 8 WEEKS
     Route: 042
     Dates: start: 20190731
  3. INFLECTRA [Suspect]
     Active Substance: INFLIXIMAB-DYYB
     Dosage: 120 MG, UNK
     Route: 042
     Dates: start: 20191022
  4. INFLECTRA [Suspect]
     Active Substance: INFLIXIMAB-DYYB
     Dosage: 120 MG, UNK
     Dates: start: 20191216
  5. INFLECTRA [Suspect]
     Active Substance: INFLIXIMAB-DYYB
     Dosage: 200 MG, Q (EVERY) 0, 2, 6 WEEKS THEN EVERY 8 WEEKS
     Route: 042
     Dates: start: 20190708
  6. METHOTREXATE. [Concomitant]
     Active Substance: METHOTREXATE
     Dosage: 20 MG, WEEKLY
     Route: 058

REACTIONS (12)
  - Emotional disorder [Unknown]
  - Anger [Unknown]
  - Incorrect dose administered [Unknown]
  - Dyspnoea [Recovered/Resolved]
  - Frustration tolerance decreased [Unknown]
  - Off label use [Unknown]
  - Crying [Unknown]
  - Inappropriate schedule of product administration [Unknown]
  - Throat tightness [Recovered/Resolved]
  - Irritability [Unknown]
  - Poor venous access [Unknown]
  - Fluid retention [Unknown]

NARRATIVE: CASE EVENT DATE: 20190611
